FAERS Safety Report 23061497 (Version 1)
Quarter: 2023Q4

REPORT INFORMATION
  Report Type: Spontaneous
  Country: US (occurrence: US)
  Receive Date: 20231013
  Receipt Date: 20231013
  Transmission Date: 20240110
  Serious: No
  Sender: FDA-Public Use
  Company Number: US-ELI_LILLY_AND_COMPANY-US202310005023

PATIENT
  Sex: Female

DRUGS (1)
  1. MOUNJARO [Suspect]
     Active Substance: TIRZEPATIDE
     Indication: Product used for unknown indication
     Dosage: 5 MG, OTHER (2 SHOTS WITHIN FOUR DAYS OF EACH OTHER IN ONE WEEK)
     Route: 065

REACTIONS (6)
  - Inappropriate schedule of product administration [Unknown]
  - Weight increased [Unknown]
  - Injection site erythema [Unknown]
  - Injection site pruritus [Unknown]
  - Drug ineffective [Unknown]
  - Injection site swelling [Unknown]
